FAERS Safety Report 10427891 (Version 1)
Quarter: 2014Q3

REPORT INFORMATION
  Report Type: Spontaneous
  Country: US (occurrence: None)
  Receive Date: 20140902
  Receipt Date: 20140902
  Transmission Date: 20150326
  Serious: Yes (Disabling, Other)
  Sender: FDA-Public Use
  Company Number: None

PATIENT
  Age: 32 Year
  Sex: Female
  Weight: 127.01 kg

DRUGS (3)
  1. CYMBALTA [Suspect]
     Active Substance: DULOXETINE HYDROCHLORIDE
     Indication: FIBROMYALGIA
     Route: 048
     Dates: start: 20120330, end: 20140331
  2. CYMBALTA [Suspect]
     Active Substance: DULOXETINE HYDROCHLORIDE
     Indication: DEPRESSION
     Route: 048
     Dates: start: 20120330, end: 20140331
  3. CYMBALTA [Suspect]
     Active Substance: DULOXETINE HYDROCHLORIDE
     Indication: ANXIETY
     Route: 048
     Dates: start: 20120330, end: 20140331

REACTIONS (16)
  - Denture wearer [None]
  - Withdrawal syndrome [None]
  - Suicidal ideation [None]
  - Headache [None]
  - Irritability [None]
  - Insomnia [None]
  - Weight increased [None]
  - Fatigue [None]
  - Tooth fracture [None]
  - Ventricular extrasystoles [None]
  - Dizziness [None]
  - Paraesthesia [None]
  - Apathy [None]
  - Tooth loss [None]
  - Asthenia [None]
  - Nausea [None]

NARRATIVE: CASE EVENT DATE: 20131201
